FAERS Safety Report 16054236 (Version 1)
Quarter: 2019Q1

REPORT INFORMATION
  Report Type: Report from Study
  Country: None (occurrence: DE)
  Receive Date: 20190308
  Receipt Date: 20190308
  Transmission Date: 20190418
  Serious: Yes (Hospitalization)
  Sender: FDA-Public Use
  Company Number: DE-ABBVIE-19K-062-2696280-00

PATIENT
  Age: 58 Year
  Sex: Male

DRUGS (1)
  1. HUMIRA [Suspect]
     Active Substance: ADALIMUMAB
     Indication: UVEITIS
     Route: 058
     Dates: start: 20170124

REACTIONS (5)
  - Hypoaesthesia [Not Recovered/Not Resolved]
  - Arthropathy [Not Recovered/Not Resolved]
  - Fall [Recovered/Resolved with Sequelae]
  - Diverticulitis [Recovered/Resolved]
  - Intervertebral disc protrusion [Recovered/Resolved with Sequelae]

NARRATIVE: CASE EVENT DATE: 201805
